FAERS Safety Report 9680715 (Version 2)
Quarter: 2013Q4

REPORT INFORMATION
  Report Type: Spontaneous
  Country: CA (occurrence: CA)
  Receive Date: 20131111
  Receipt Date: 20131217
  Transmission Date: 20140711
  Serious: Yes (Hospitalization)
  Sender: FDA-Public Use
  Company Number: CA-AMGEN-CANSP2013078588

PATIENT
  Age: 75 Year
  Sex: Female
  Weight: 51 kg

DRUGS (11)
  1. PROLIA [Suspect]
     Indication: OSTEOPOROSIS POSTMENOPAUSAL
     Dosage: 60 MG, Q6MO
     Route: 058
     Dates: start: 20120626
  2. ELTROXIN [Concomitant]
     Indication: HYPOTHYROIDISM
     Dosage: 0.15 MUG, QD
     Route: 048
  3. LIPITOR [Concomitant]
     Indication: TRANSIENT ISCHAEMIC ATTACK
     Dosage: 20 MG, QD
     Route: 048
  4. LASIX                              /00032601/ [Concomitant]
     Indication: CARDIAC FAILURE CHRONIC
     Dosage: 100 MG, QD
     Route: 048
  5. RAMIPRIL [Concomitant]
     Indication: CARDIAC FAILURE CHRONIC
     Dosage: 2.5 MG, QD
     Route: 048
  6. BOSENTAN [Concomitant]
     Indication: PULMONARY HYPERTENSION
     Dosage: 125 MG, BID
     Route: 048
  7. ACETYLSALICYLIC ACID [Concomitant]
     Dosage: 81 MG, QD
  8. VITAMIN D                          /00107901/ [Concomitant]
     Dosage: 1000 IU, QD
  9. FERROUS SULFATE [Concomitant]
     Dosage: 300 MG, QD
  10. ADVAIR [Concomitant]
     Dosage: 250 2 PUFF, BID
  11. VITAMIN B12                        /00056201/ [Concomitant]
     Dosage: 1 MG, QD
     Route: 048

REACTIONS (3)
  - Transient ischaemic attack [Recovered/Resolved]
  - Aphasia [Recovering/Resolving]
  - Dysarthria [Recovering/Resolving]
